FAERS Safety Report 25749305 (Version 2)
Quarter: 2025Q4

REPORT INFORMATION
  Report Type: Spontaneous
  Country: US (occurrence: US)
  Receive Date: 20250902
  Receipt Date: 20251014
  Transmission Date: 20260118
  Serious: No
  Sender: Kenvue
  Company Number: US-KENVUE-20250802357

PATIENT
  Age: 77 Year
  Sex: Female

DRUGS (10)
  1. WOMENS ROGAINE UNSCENTED [Suspect]
     Active Substance: MINOXIDIL
     Indication: Alopecia
     Dosage: 1/2-3/4 CAP DAILY, ONE PUSH , ONCE A DAY
     Route: 061
     Dates: start: 2024, end: 202508
  2. DULOXETINE [Concomitant]
     Active Substance: DULOXETINE
     Indication: Product used for unknown indication
     Dosage: UNK
     Route: 065
     Dates: start: 2000
  3. BUDESONIDE [Concomitant]
     Active Substance: BUDESONIDE
     Indication: Product used for unknown indication
     Dosage: UNK
     Route: 065
     Dates: start: 2021
  4. LOSARTAN [Concomitant]
     Active Substance: LOSARTAN
     Indication: Blood pressure measurement
     Dosage: UNK
     Route: 065
     Dates: start: 2024
  5. ALENDRONATE SODIUM [Concomitant]
     Active Substance: ALENDRONATE SODIUM
     Indication: Bone disorder
     Dosage: UNK
     Route: 065
     Dates: start: 2020
  6. METRONIDAZOLE [Concomitant]
     Active Substance: METRONIDAZOLE
     Indication: Rosacea
     Dosage: UNK
     Route: 065
     Dates: start: 2000
  7. CRANBERRY [Concomitant]
     Active Substance: CRANBERRY
     Indication: Bladder disorder
     Dosage: UNK
     Route: 065
     Dates: start: 2000
  8. VITAMIN D [Concomitant]
     Active Substance: VITAMIN D NOS
     Indication: Product used for unknown indication
     Dosage: UNK
     Route: 065
     Dates: start: 2020
  9. VITAMIN B [Concomitant]
     Active Substance: VITAMIN B
     Indication: Product used for unknown indication
     Dosage: UNK
     Route: 065
     Dates: start: 2020
  10. Nature^s Bounty [Concomitant]
     Indication: Hair growth abnormal
     Dosage: UNK
     Route: 065
     Dates: start: 2025

REACTIONS (2)
  - Pruritus [Recovered/Resolved]
  - Overdose [Unknown]

NARRATIVE: CASE EVENT DATE: 20250108
